FAERS Safety Report 7693366-0 (Version None)
Quarter: 2011Q3

REPORT INFORMATION
  Report Type: 
  Country: None (occurrence: None)
  Receive Date: 20110819
  Receipt Date: 20110815
  Transmission Date: 20111222
  Serious: Yes (Other)
  Sender: FDA-Public Use
  Company Number: BR-PFIZER INC-2011187079

PATIENT
  Age: 63 Year
  Sex: Female
  Weight: 70 kg

DRUGS (7)
  1. PROPRANOLOL [Concomitant]
     Indication: TACHYCARDIA
     Dosage: UNK
  2. TAPAZOL [Concomitant]
     Indication: HYPERTHYROIDISM
  3. MODURETIC 5-50 [Concomitant]
     Indication: HYPERTENSION
     Dosage: UNK
  4. VARENICLINE TARTRATE [Suspect]
     Dosage: 1 MG, 2X/DAY
     Route: 048
     Dates: end: 20110806
  5. VARENICLINE TARTRATE [Suspect]
     Indication: TOBACCO USER
     Dosage: UNK
     Route: 048
     Dates: start: 20110704
  6. METFORMIN HYDROCHLORIDE [Concomitant]
     Indication: GLUCOSE TOLERANCE IMPAIRED
     Dosage: 500
  7. SIMVASTATIN [Concomitant]
     Indication: BLOOD CHOLESTEROL INCREASED
     Dosage: UNK

REACTIONS (2)
  - SKIN EXFOLIATION [None]
  - HYPERSENSITIVITY [None]
